FAERS Safety Report 18021292 (Version 4)
Quarter: 2022Q1

REPORT INFORMATION
  Report Type: Report from Study
  Country: IL (occurrence: IL)
  Receive Date: 20200714
  Receipt Date: 20220119
  Transmission Date: 20220423
  Serious: Yes (Death, Hospitalization)
  Sender: FDA-Public Use
  Company Number: IL-ABBVIE-20K-082-3476668-00

PATIENT
  Age: 81 Year
  Sex: Male
  Weight: 69 kg

DRUGS (11)
  1. VENETOCLAX [Suspect]
     Active Substance: VENETOCLAX
     Indication: Acute myeloid leukaemia
     Dosage: TYPE OF CHANGE TREATMENT- RAMP UP
     Route: 048
     Dates: start: 20200426, end: 20200426
  2. VENETOCLAX [Suspect]
     Active Substance: VENETOCLAX
     Dosage: TYPE OF CHANGE TREATMENT- RAMP UP
     Route: 048
     Dates: start: 20200427, end: 20200427
  3. VENETOCLAX [Suspect]
     Active Substance: VENETOCLAX
     Dosage: TYPE OF CHANGE TREATMENT- INTERRUPTION
     Route: 048
     Dates: start: 20200428, end: 20200524
  4. VENETOCLAX [Suspect]
     Active Substance: VENETOCLAX
     Dosage: TYPE OF CHANGE TREATMENT- DISCONITNUED
     Route: 048
     Dates: start: 20200601, end: 20200621
  5. AZACITIDINE [Suspect]
     Active Substance: AZACITIDINE
     Indication: Product used for unknown indication
     Route: 058
     Dates: start: 20200426, end: 20200502
  6. AZACITIDINE [Suspect]
     Active Substance: AZACITIDINE
     Route: 058
     Dates: start: 20200601, end: 20200609
  7. HYDREA [Suspect]
     Active Substance: HYDROXYUREA
     Indication: Acute myeloid leukaemia
     Route: 048
     Dates: start: 20200421, end: 20200426
  8. ALLOPURINOL [Concomitant]
     Active Substance: ALLOPURINOL
     Indication: Prophylaxis
     Dates: start: 20200421
  9. BASAGLAR [Concomitant]
     Active Substance: INSULIN GLARGINE
     Indication: Diabetes mellitus
     Dates: start: 20200506
  10. SIMVASTATIN [Concomitant]
     Active Substance: SIMVASTATIN
     Indication: Hyperlipidaemia
     Dates: start: 20081027
  11. RIPALID [Concomitant]
     Indication: Diabetes mellitus
     Dates: start: 20200324

REACTIONS (2)
  - Constipation [Recovered/Resolved]
  - Acute myeloid leukaemia [Fatal]

NARRATIVE: CASE EVENT DATE: 20200616
